FAERS Safety Report 9158441 (Version 1)
Quarter: 2013Q1

REPORT INFORMATION
  Report Type: Spontaneous
  Country: US (occurrence: US)
  Receive Date: 20130312
  Receipt Date: 20130312
  Transmission Date: 20140127
  Serious: Yes (Hospitalization)
  Sender: FDA-Public Use
  Company Number: US-BAYER-2013-028306

PATIENT
  Age: 31 Year
  Sex: Female

DRUGS (2)
  1. OCELLA [Suspect]
     Dosage: UNK
  2. OMEPRAZOLE [Concomitant]
     Dosage: 20 MG, UNK
     Route: 048

REACTIONS (2)
  - Pulmonary embolism [Recovered/Resolved]
  - Deep vein thrombosis [Recovered/Resolved]
